FAERS Safety Report 4768240-X (Version None)
Quarter: 2005Q3

REPORT INFORMATION
  Report Type: 
  Country: None (occurrence: None)
  Receive Date: 20050912
  Receipt Date: 20050830
  Transmission Date: 20060218
  Serious: Yes (Hospitalization)
  Sender: FDA-Public Use
  Company Number: B0390100A

PATIENT
  Age: 33 Year
  Sex: Male

DRUGS (5)
  1. ZIAGEN [Suspect]
     Indication: HIV INFECTION
  2. LOPINAVIR + RITONAVIR (LOPINAVIR + RITONAVIR) [Suspect]
     Indication: HIV INFECTION
  3. DIDANOSINE [Suspect]
     Indication: HIV INFECTION
  4. STAVUDINE [Concomitant]
  5. GEMFIBROZIL [Concomitant]

REACTIONS (5)
  - BLOOD LACTATE DEHYDROGENASE INCREASED [None]
  - HEPATOMEGALY [None]
  - HYPOALBUMINAEMIA [None]
  - LACTIC ACIDOSIS [None]
  - WEIGHT DECREASED [None]
